FAERS Safety Report 7828546-4 (Version None)
Quarter: 2011Q4

REPORT INFORMATION
  Report Type: 
  Country: None (occurrence: None)
  Receive Date: 20111020
  Receipt Date: 20111020
  Transmission Date: 20120403
  Serious: Yes (Other)
  Sender: FDA-Public Use
  Company Number: None

PATIENT
  Age: 38 Year
  Sex: Female

DRUGS (1)
  1. OMNIPAQUE 350 [Suspect]
     Indication: COMPUTERISED TOMOGRAM
     Dosage: 50 ML
     Route: 042
     Dates: start: 20110914, end: 20110914

REACTIONS (3)
  - PRURITUS GENERALISED [None]
  - URTICARIA [None]
  - SCRATCH [None]
